FAERS Safety Report 23459236 (Version 6)
Quarter: 2025Q1

REPORT INFORMATION
  Report Type: Report from Study
  Country: GB (occurrence: GB)
  Receive Date: 20240131
  Receipt Date: 20250321
  Transmission Date: 20250409
  Serious: Yes (Hospitalization, Other)
  Sender: UCB
  Company Number: GB-UCBSA-2023058293

PATIENT
  Age: 30 Year
  Sex: Female
  Weight: 101.5 kg

DRUGS (25)
  1. BIMEKIZUMAB [Suspect]
     Active Substance: BIMEKIZUMAB
     Indication: Psoriasis
     Dosage: 320 MILLIGRAM, EV 4 WEEKS
     Route: 058
     Dates: start: 20231127, end: 20231227
  2. BIMEKIZUMAB [Suspect]
     Active Substance: BIMEKIZUMAB
     Indication: Psoriatic arthropathy
  3. BETNOVATE [Concomitant]
     Active Substance: BETAMETHASONE
     Indication: Psoriasis
     Route: 061
     Dates: start: 20231005
  4. LEVOTHYROXINE [Concomitant]
     Active Substance: LEVOTHYROXINE
     Indication: Hypothyroidism
     Dosage: 175 MICROGRAM, EV 2 DAYS (QOD)
     Route: 048
     Dates: start: 20171030
  5. LEVOTHYROXINE [Concomitant]
     Active Substance: LEVOTHYROXINE
     Indication: Graves^ disease
     Dosage: 200 MICROGRAM, EV 2 DAYS (QOD)
     Route: 048
     Dates: start: 20171030
  6. SOOLANTRA [Concomitant]
     Active Substance: IVERMECTIN
     Indication: Dermatitis atopic
     Dosage: 10MG/G ONCE DAILY
     Route: 061
     Dates: start: 20230914
  7. BRICANYL [Concomitant]
     Active Substance: TERBUTALINE SULFATE
     Indication: Asthma
     Dates: start: 20220804
  8. LOPERAMIDE [Concomitant]
     Active Substance: LOPERAMIDE
     Indication: Diarrhoea
     Route: 048
     Dates: start: 20230125
  9. LOPERAMIDE [Concomitant]
     Active Substance: LOPERAMIDE
     Route: 048
  10. COAL TAR\COCONUT OIL\SALICYLIC ACID [Concomitant]
     Active Substance: COAL TAR\COCONUT OIL\SALICYLIC ACID
     Indication: Psoriasis
     Route: 061
     Dates: start: 20231025
  11. SYMBICORT [Concomitant]
     Active Substance: BUDESONIDE\FORMOTEROL FUMARATE DIHYDRATE
     Indication: Asthma
     Dates: start: 20221005
  12. SYMBICORT [Concomitant]
     Active Substance: BUDESONIDE\FORMOTEROL FUMARATE DIHYDRATE
     Dates: start: 20221005
  13. CLOBETASOL PROPIONATE [Concomitant]
     Active Substance: CLOBETASOL PROPIONATE
     Indication: Psoriasis
     Route: 061
     Dates: start: 20220804
  14. OLOPATADINE [Concomitant]
     Active Substance: OLOPATADINE
     Indication: Conjunctivitis
     Route: 047
     Dates: start: 20220809
  15. METHOTREXATE [Concomitant]
     Active Substance: METHOTREXATE
     Indication: Product used for unknown indication
     Dosage: 12.5 MILLIGRAM, WEEKLY (QW)
     Route: 048
     Dates: start: 20231005
  16. BUTYLSCOPOLAMINE BROMIDE [Concomitant]
     Active Substance: BUTYLSCOPOLAMINE BROMIDE
     Indication: Analgesic therapy
     Route: 048
     Dates: start: 20240115, end: 20240125
  17. CYCLIZINE [Concomitant]
     Active Substance: CYCLIZINE
     Indication: Antiemetic supportive care
     Dosage: 50 MILLIGRAM, 3X/DAY (TID)
     Route: 048
     Dates: start: 20240122
  18. ACETAMINOPHEN [Concomitant]
     Active Substance: ACETAMINOPHEN
     Indication: Analgesic therapy
     Dosage: 1 GRAM, ONCE DAILY (QD)
     Route: 048
     Dates: start: 20240125, end: 20240212
  19. ENOXAPARIN [Concomitant]
     Active Substance: ENOXAPARIN
     Indication: Coagulopathy
     Dosage: 40 MILLIGRAM, ONCE DAILY (QD)
     Route: 058
     Dates: start: 20240125, end: 20240211
  20. SODIUM PHOSPHATE [Concomitant]
     Active Substance: SODIUM PHOSPHATE
     Indication: Induction of anaesthesia
     Dosage: UNK, ONCE DAILY (QD), ENEMA
     Route: 054
     Dates: start: 20240125, end: 20240125
  21. NITROUS OXIDE\OXYGEN [Concomitant]
     Active Substance: NITROUS OXIDE\OXYGEN
     Indication: Induction of anaesthesia
     Dosage: UNK, ONCE DAILY (QD)
     Dates: start: 20240125, end: 20240125
  22. NITROUS OXIDE\OXYGEN [Concomitant]
     Active Substance: NITROUS OXIDE\OXYGEN
     Dosage: UNK, ONCE DAILY (QD)
     Dates: start: 20240207, end: 20240207
  23. CALCIUM CARBONATE\CHOLECALCIFEROL [Concomitant]
     Active Substance: CALCIUM CARBONATE\CHOLECALCIFEROL
     Indication: Blood calcium
     Dosage: 750 / 200, MG/U NIT 2X/DAY (BID)
     Route: 048
     Dates: start: 20240126, end: 20240212
  24. ENSURE [Concomitant]
     Active Substance: AMINO ACIDS\DEXTROSE\ELECTROLYTES NOS\SOYBEAN OIL\VITAMINS
     Indication: Supplementation therapy
     Dosage: UNK, 3X/DAY (TID)
     Route: 048
     Dates: start: 20240126, end: 20240127
  25. TRIMOVATE [Concomitant]
     Active Substance: CLOBETASONE BUTYRATE\NYSTATIN\OXYTETRACYCLINE CALCIUM
     Indication: Asthma
     Dates: start: 20220804

REACTIONS (3)
  - Influenza [Recovering/Resolving]
  - Colitis [Not Recovered/Not Resolved]
  - Oral candidiasis [Not Recovered/Not Resolved]

NARRATIVE: CASE EVENT DATE: 20231204
